FAERS Safety Report 5998337-8 (Version None)
Quarter: 2008Q4

REPORT INFORMATION
  Report Type: 
  Country: None (occurrence: None)
  Receive Date: 20081213
  Receipt Date: 20080625
  Transmission Date: 20090506
  Serious: No
  Sender: FDA-Public Use
  Company Number: US-AMGEN-KDL290178

PATIENT
  Sex: Male

DRUGS (1)
  1. ENBREL [Suspect]
     Indication: ANKYLOSING SPONDYLITIS
     Route: 058
     Dates: start: 20030901

REACTIONS (6)
  - CHILLS [None]
  - HEADACHE [None]
  - NASOPHARYNGITIS [None]
  - OROPHARYNGEAL PAIN [None]
  - PAIN [None]
  - PYREXIA [None]
